FAERS Safety Report 11183738 (Version 1)
Quarter: 2015Q2

REPORT INFORMATION
  Report Type: Spontaneous
  Country: US (occurrence: None)
  Receive Date: 20150610
  Receipt Date: 20150610
  Transmission Date: 20150821
  Serious: Yes (Other)
  Sender: FDA-Public Use
  Company Number: None

PATIENT
  Age: 75 Year
  Sex: Female
  Weight: 48.54 kg

DRUGS (10)
  1. PROLIA [Suspect]
     Active Substance: DENOSUMAB
     Indication: OSTEOPOROSIS
     Dosage: INJECTION ONCE EVERY SIX MONTHS
     Dates: start: 20150427
  2. CALCIUM [Concomitant]
     Active Substance: CALCIUM
  3. METOPROLOL [Concomitant]
     Active Substance: METOPROLOL
  4. VITAMIN C [Concomitant]
     Active Substance: ASCORBIC ACID
  5. D3 [Concomitant]
     Active Substance: 25-HYDROXYCHOLECALCIFEROL, 5-TRANS-
  6. BENEDRIL [Concomitant]
  7. TRAMADOL [Concomitant]
     Active Substance: TRAMADOL
  8. MULTIVITAMIN [Concomitant]
     Active Substance: VITAMINS
  9. TRAZODONE [Concomitant]
     Active Substance: TRAZODONE HYDROCHLORIDE
  10. OMEGA [Concomitant]
     Active Substance: CONVALLARIA MAJALIS\CRATAEGUS LAEVIGATA LEAF\PROXYPHYLLINE

REACTIONS (4)
  - Chills [None]
  - Hot flush [None]
  - Pruritus generalised [None]
  - Rash generalised [None]

NARRATIVE: CASE EVENT DATE: 20150424
